FAERS Safety Report 4490917-4 (Version None)
Quarter: 2004Q4

REPORT INFORMATION
  Report Type: 
  Country: None (occurrence: None)
  Receive Date: 20041027
  Receipt Date: 20051015
  Transmission Date: 20050328
  Serious: Yes (Other)
  Sender: FDA-Public Use
  Company Number: USA-2004-0017254

PATIENT
  Age: 74 Year
  Sex: Male

DRUGS (1)
  1. MS CONTIN [Suspect]
     Indication: PAIN
     Dosage: 30 MG, BID, 60 MG, BID, 30 MG BID
     Dates: end: 20041014

REACTIONS (3)
  - BLOOD CREATININE INCREASED [None]
  - MENTAL STATUS CHANGES [None]
  - URINARY TRACT INFECTION [None]
